FAERS Safety Report 8013807-9 (Version None)
Quarter: 2011Q4

REPORT INFORMATION
  Report Type: 
  Country: None (occurrence: None)
  Receive Date: 20111229
  Receipt Date: 20111215
  Transmission Date: 20120403
  Serious: Yes (Hospitalization, Other)
  Sender: FDA-Public Use
  Company Number: PHFR2011IE03969

PATIENT
  Sex: Male

DRUGS (4)
  1. OLANZAPINE [Concomitant]
     Dosage: 15 MG, UNK
     Route: 048
  2. FLUOXETINE [Concomitant]
     Dosage: 60 MG, UNK
     Route: 048
  3. NEXIUM [Concomitant]
     Dosage: 40 MG, UNK
     Route: 048
  4. CLOZARIL [Suspect]
     Indication: SCHIZOPHRENIA
     Dosage: 600 MG, DAILY
     Route: 048
     Dates: start: 20041120, end: 20110708

REACTIONS (13)
  - VOMITING [None]
  - GASTROINTESTINAL DISORDER [None]
  - PLEURAL EFFUSION [None]
  - FATIGUE [None]
  - CHEST PAIN [None]
  - BLOOD THYROID STIMULATING HORMONE [None]
  - PLATELET COUNT DECREASED [None]
  - PULMONARY OEDEMA [None]
  - EOSINOPHIL COUNT INCREASED [None]
  - DIARRHOEA [None]
  - NEUTROPHIL COUNT DECREASED [None]
  - BLOOD CHOLESTEROL INCREASED [None]
  - PLATELET COUNT INCREASED [None]
